FAERS Safety Report 7543956-0 (Version None)
Quarter: 2011Q2

REPORT INFORMATION
  Report Type: 
  Country: None (occurrence: None)
  Receive Date: 20110613
  Receipt Date: 20041008
  Transmission Date: 20111010
  Serious: Yes (Hospitalization, Other)
  Sender: FDA-Public Use
  Company Number: PHHO2004JP14425

PATIENT
  Sex: Female
  Weight: 61 kg

DRUGS (1)
  1. DIOVAN [Suspect]
     Indication: HYPERTENSION
     Dosage: 80 MG, QD
     Route: 048
     Dates: start: 20030604

REACTIONS (5)
  - PYREXIA [None]
  - IRRITABLE BOWEL SYNDROME [None]
  - ERYTHEMA [None]
  - THROMBOPHLEBITIS [None]
  - OEDEMA PERIPHERAL [None]
